FAERS Safety Report 22218137 (Version 1)
Quarter: 2023Q2

REPORT INFORMATION
  Report Type: Spontaneous
  Country: IT (occurrence: IT)
  Receive Date: 20230417
  Receipt Date: 20230417
  Transmission Date: 20230721
  Serious: Yes (Other)
  Sender: FDA-Public Use
  Company Number: IT-PFIZER INC-PV202300064957

PATIENT
  Age: 39 Year
  Sex: Male

DRUGS (3)
  1. METHYLPREDNISOLONE [Suspect]
     Active Substance: METHYLPREDNISOLONE
     Indication: Differentiation syndrome
     Dosage: UNK
  2. ARSENIC TRIOXIDE [Suspect]
     Active Substance: ARSENIC TRIOXIDE
     Indication: Differentiation syndrome
     Dosage: UNK
  3. TRETINOIN [Suspect]
     Active Substance: TRETINOIN
     Indication: Differentiation syndrome
     Dosage: UNK

REACTIONS (3)
  - Retinal detachment [Recovering/Resolving]
  - Blindness [Unknown]
  - Off label use [Unknown]
